FAERS Safety Report 25417855 (Version 1)
Quarter: 2025Q2

REPORT INFORMATION
  Report Type: Other
  Country: US (occurrence: US)
  Receive Date: 20250610
  Receipt Date: 20250610
  Transmission Date: 20250717
  Serious: Yes (Hospitalization)
  Sender: ANI
  Company Number: US-ANIPHARMA-023117

PATIENT
  Age: 23 Year
  Sex: Male

DRUGS (18)
  1. LORAZEPAM [Suspect]
     Active Substance: LORAZEPAM
     Indication: Catatonia
  2. FLUPHENAZINE DECANOATE [Concomitant]
     Active Substance: FLUPHENAZINE DECANOATE
     Indication: Psychotic disorder
     Route: 030
  3. CARBAMAZEPINE [Concomitant]
     Active Substance: CARBAMAZEPINE
     Indication: Psychotic disorder
  4. GUANFACINE [Concomitant]
     Active Substance: GUANFACINE
     Indication: Psychotic disorder
  5. BENZTROPINE [Concomitant]
     Active Substance: BENZTROPINE
     Indication: Psychotic disorder
  6. DANTROLENE [Concomitant]
     Active Substance: DANTROLENE
     Indication: Neuroleptic malignant syndrome
  7. DEXMEDETOMIDINE [Concomitant]
     Active Substance: DEXMEDETOMIDINE
     Indication: Neuroleptic malignant syndrome
  8. CLONIDINE [Concomitant]
     Active Substance: CLONIDINE
     Indication: Neuroleptic malignant syndrome
  9. LORAZEPAM [Suspect]
     Active Substance: LORAZEPAM
     Indication: Neuroleptic malignant syndrome
  10. FLUPHENAZINE DECANOATE [Concomitant]
     Active Substance: FLUPHENAZINE DECANOATE
     Indication: Agitation
     Route: 030
  11. FLUPHENAZINE DECANOATE [Concomitant]
     Active Substance: FLUPHENAZINE DECANOATE
     Indication: Catatonia
     Route: 030
  12. LORAZEPAM [Suspect]
     Active Substance: LORAZEPAM
     Indication: Neuroleptic malignant syndrome
  13. BENZTROPINE [Concomitant]
     Active Substance: BENZTROPINE
     Indication: Agitation
  14. BENZTROPINE [Concomitant]
     Active Substance: BENZTROPINE
     Indication: Catatonia
  15. GUANFACINE [Concomitant]
     Active Substance: GUANFACINE
     Indication: Agitation
  16. GUANFACINE [Concomitant]
     Active Substance: GUANFACINE
     Indication: Catatonia
  17. CARBAMAZEPINE [Concomitant]
     Active Substance: CARBAMAZEPINE
     Indication: Agitation
  18. CARBAMAZEPINE [Concomitant]
     Active Substance: CARBAMAZEPINE
     Indication: Catatonia

REACTIONS (1)
  - Treatment noncompliance [Unknown]
